FAERS Safety Report 21623112 (Version 2)
Quarter: 2023Q1

REPORT INFORMATION
  Report Type: Spontaneous
  Country: US (occurrence: US)
  Receive Date: 20221121
  Receipt Date: 20230105
  Transmission Date: 20230418
  Serious: Yes (Other)
  Sender: FDA-Public Use
  Company Number: US-PFIZER INC-PV202200106391

PATIENT
  Age: 83 Year
  Sex: Female

DRUGS (1)
  1. XELJANZ XR [Suspect]
     Active Substance: TOFACITINIB CITRATE
     Dosage: UNK

REACTIONS (6)
  - Knee arthroplasty [Unknown]
  - Hip arthroplasty [Unknown]
  - Arthralgia [Unknown]
  - Pain in extremity [Unknown]
  - Asthma [Unknown]
  - Muscular weakness [Unknown]
